FAERS Safety Report 10214258 (Version 1)
Quarter: 2014Q2

REPORT INFORMATION
  Report Type: Report from Study
  Country: CO (occurrence: CO)
  Receive Date: 20140603
  Receipt Date: 20140603
  Transmission Date: 20141212
  Serious: Yes (Hospitalization)
  Sender: FDA-Public Use
  Company Number: CO-SA-2014SA068625

PATIENT
  Age: 52 Year
  Sex: Female

DRUGS (1)
  1. LANTUS [Suspect]
     Indication: DIABETES MELLITUS
     Dosage: DOSE-14U(10UNITS AM AND 4 UNITS PM) DOSE:14 UNIT(S)
     Route: 058
     Dates: start: 2010

REACTIONS (2)
  - Diabetic foot [Unknown]
  - Cyst [Unknown]
